FAERS Safety Report 17805632 (Version 2)
Quarter: 2020Q3

REPORT INFORMATION
  Report Type: Spontaneous
  Country: US (occurrence: US)
  Receive Date: 20200519
  Receipt Date: 20200707
  Transmission Date: 20201102
  Serious: No
  Sender: FDA-Public Use
  Company Number: US-ASTRAZENECA-2020SE61647

PATIENT
  Sex: Female
  Weight: 87.5 kg

DRUGS (2)
  1. BYDUREON BCISE [Suspect]
     Active Substance: EXENATIDE
     Indication: TYPE 2 DIABETES MELLITUS
     Route: 058
     Dates: start: 2014
  2. BYDUREON [Suspect]
     Active Substance: EXENATIDE
     Route: 065

REACTIONS (5)
  - Device leakage [Unknown]
  - Inability to afford medication [Unknown]
  - Confusional state [Unknown]
  - Wrong technique in device usage process [Unknown]
  - Device issue [Unknown]
